FAERS Safety Report 7565606-X (Version None)
Quarter: 2011Q2

REPORT INFORMATION
  Report Type: 
  Country: None (occurrence: None)
  Receive Date: 20110623
  Receipt Date: 20110608
  Transmission Date: 20111010
  Serious: Yes (Other)
  Sender: FDA-Public Use
  Company Number: US-JNJFOC-20110608967

PATIENT
  Age: 63 Year
  Sex: Male

DRUGS (20)
  1. HUMIRA [Concomitant]
     Dates: start: 20090310
  2. PREDNISONE [Concomitant]
     Dates: start: 20090627
  3. REMICADE [Suspect]
     Route: 042
     Dates: start: 20090514
  4. HUMIRA [Concomitant]
     Indication: PRODUCT USED FOR UNKNOWN INDICATION
     Dates: start: 20090220
  5. ASACOL [Concomitant]
     Indication: PRODUCT USED FOR UNKNOWN INDICATION
     Dates: start: 20090105
  6. PREDNISONE [Concomitant]
     Dates: start: 20090410
  7. REMICADE [Suspect]
     Route: 042
     Dates: start: 20090402
  8. HUMIRA [Concomitant]
     Dates: start: 20090224
  9. REMICADE [Suspect]
     Route: 042
     Dates: start: 20090416
  10. PREDNISONE [Concomitant]
     Dates: start: 20090606
  11. REMICADE [Suspect]
     Indication: PRODUCT USED FOR UNKNOWN INDICATION
     Route: 042
     Dates: start: 20090610
  12. HUMIRA [Concomitant]
     Dates: start: 20090320
  13. PREDNISONE [Concomitant]
     Indication: PRODUCT USED FOR UNKNOWN INDICATION
     Dates: start: 20090312
  14. PREDNISONE [Concomitant]
     Dates: start: 20090528
  15. PREDNISONE [Concomitant]
     Dates: start: 20090507
  16. ASACOL [Concomitant]
     Dates: start: 20090405
  17. MERCAPTOPURINE [Concomitant]
     Indication: PRODUCT USED FOR UNKNOWN INDICATION
     Dates: start: 20090703
  18. HUMIRA [Concomitant]
     Dates: start: 20090407
  19. HUMIRA [Concomitant]
     Dates: start: 20090127
  20. MERCAPTOPURINE [Concomitant]
     Dates: start: 20090603

REACTIONS (1)
  - PROGRESSIVE MULTIFOCAL LEUKOENCEPHALOPATHY [None]
